FAERS Safety Report 8672934 (Version 4)
Quarter: 2014Q3

REPORT INFORMATION
  Report Type: Spontaneous
  Country: US (occurrence: US)
  Receive Date: 20120719
  Receipt Date: 20140731
  Transmission Date: 20150326
  Serious: Yes (Hospitalization)
  Sender: FDA-Public Use
  Company Number: US-009507513-2009-199327-NL

PATIENT
  Sex: Female
  Weight: 40.82 kg

DRUGS (6)
  1. NUVARING [Suspect]
     Active Substance: ETHINYL ESTRADIOL\ETONOGESTREL
     Indication: CONTRACEPTION
     Dosage: UNK
     Route: 067
     Dates: start: 200603, end: 20060829
  2. TOPAMAX [Concomitant]
     Active Substance: TOPIRAMATE
     Indication: PRODUCT USED FOR UNKNOWN INDICATION
  3. PERCOCET [Concomitant]
     Active Substance: ACETAMINOPHEN\OXYCODONE HYDROCHLORIDE
     Indication: PRODUCT USED FOR UNKNOWN INDICATION
  4. EFFEXOR [Concomitant]
     Active Substance: VENLAFAXINE HYDROCHLORIDE
     Indication: PRODUCT USED FOR UNKNOWN INDICATION
  5. XANAX [Concomitant]
     Active Substance: ALPRAZOLAM
     Indication: SLEEP DISORDER
     Dosage: 2 MG, BID
     Dates: start: 200604
  6. XANAX [Concomitant]
     Active Substance: ALPRAZOLAM
     Indication: ANXIETY

REACTIONS (21)
  - Upper-airway cough syndrome [Unknown]
  - Anovulatory cycle [Unknown]
  - Viral upper respiratory tract infection [Unknown]
  - Thrombophlebitis superficial [Unknown]
  - Deep vein thrombosis [Unknown]
  - Muscle spasms [Unknown]
  - Sinusitis [Unknown]
  - Insomnia [Unknown]
  - Luteal phase deficiency [Unknown]
  - Haemorrhoids [Unknown]
  - Pelvic adhesions [Unknown]
  - Pain [Unknown]
  - Sinusitis [Unknown]
  - Dyspepsia [Unknown]
  - Gastrooesophageal reflux disease [Unknown]
  - Deep vein thrombosis [Unknown]
  - Hypersomnia [Unknown]
  - Haematemesis [Unknown]
  - Tendonitis [Unknown]
  - Lymphadenitis bacterial [Recovering/Resolving]
  - Endometriosis [Not Recovered/Not Resolved]

NARRATIVE: CASE EVENT DATE: 20060924
